FAERS Safety Report 16448994 (Version 1)
Quarter: 2019Q2

REPORT INFORMATION
  Report Type: Spontaneous
  Country: US (occurrence: US)
  Receive Date: 20190619
  Receipt Date: 20190619
  Transmission Date: 20190711
  Serious: No
  Sender: FDA-Public Use
  Company Number: US-AUROBINDO-AUR-APU-2018-056449

PATIENT
  Age: 5 Year
  Sex: Female

DRUGS (1)
  1. CLINDAMYCIN PALMITATE HYDROCHLORIDE FOR ORAL SOLUTION USP(PEDIATRIC) [Suspect]
     Active Substance: CLINDAMYCIN PALMITATE HYDROCHLORIDE
     Indication: PROPHYLAXIS
     Dosage: 13.6 MILLILITER, 3 TIMES A DAY
     Route: 048
     Dates: start: 20181110, end: 20181114

REACTIONS (3)
  - Condition aggravated [Unknown]
  - Product quality issue [Unknown]
  - Drug ineffective [Unknown]
